FAERS Safety Report 17525508 (Version 2)
Quarter: 2020Q2

REPORT INFORMATION
  Report Type: Report from Study
  Country: US (occurrence: US)
  Receive Date: 20200310
  Receipt Date: 20200401
  Transmission Date: 20200713
  Serious: No
  Sender: FDA-Public Use
  Company Number: US-AGIOS-2002US01672

PATIENT

DRUGS (4)
  1. LASIX [Concomitant]
     Active Substance: FUROSEMIDE
     Indication: PRODUCT USED FOR UNKNOWN INDICATION
  2. TIBSOVO [Suspect]
     Active Substance: IVOSIDENIB
     Indication: ACUTE MYELOID LEUKAEMIA
     Dosage: 250MG, QD
     Route: 048
     Dates: start: 20200128
  3. DIGOXIN. [Concomitant]
     Active Substance: DIGOXIN
     Indication: PRODUCT USED FOR UNKNOWN INDICATION
  4. TIBSOVO [Suspect]
     Active Substance: IVOSIDENIB
     Dosage: 250MG, 2 TABLETS (500MG) DAILY
     Route: 048

REACTIONS (5)
  - Intraocular pressure increased [Not Recovered/Not Resolved]
  - Blood pressure diastolic increased [Unknown]
  - Weight increased [Unknown]
  - Therapeutic response unexpected [Unknown]
  - Off label use [Unknown]

NARRATIVE: CASE EVENT DATE: 20200128
